FAERS Safety Report 8474073-3 (Version None)
Quarter: 2012Q2

REPORT INFORMATION
  Report Type: 
  Country: None (occurrence: None)
  Receive Date: 20120628
  Receipt Date: 20110615
  Transmission Date: 20120825
  Serious: Yes (Other)
  Sender: FDA-Public Use
  Company Number: US-MYLANLABS-2011S1006909

PATIENT
  Age: 48 Year
  Sex: Female
  Weight: 67.5 kg

DRUGS (14)
  1. CLOZAPINE [Suspect]
     Route: 048
     Dates: start: 20070930, end: 20110301
  2. FLAXSEED OIL [Concomitant]
  3. CLOZAPINE [Suspect]
     Indication: SCHIZOPHRENIA, PARANOID TYPE
     Route: 048
     Dates: start: 20070930, end: 20110301
  4. KLONOPIN [Concomitant]
  5. LEVOTHYROXINE [Concomitant]
  6. MULTI-VITAMIN [Concomitant]
  7. DOCUSATE [Concomitant]
  8. CLOZAPINE [Suspect]
     Route: 048
     Dates: start: 20110301, end: 20110501
  9. LEVOTHYROXINE [Concomitant]
  10. CLOZAPINE [Suspect]
     Route: 048
     Dates: start: 20110301, end: 20110501
  11. RISPERIDONE [Concomitant]
  12. NEFAZODONE HCL [Concomitant]
  13. ALBUTEROL [Concomitant]
     Indication: WHEEZING
     Dosage: Q 4 HOURS PRN
     Route: 055
  14. CALTRATE + VITAMIN D [Concomitant]

REACTIONS (2)
  - LEUKOPENIA [None]
  - GRANULOCYTOPENIA [None]
